FAERS Safety Report 21352774 (Version 1)
Quarter: 2022Q3

REPORT INFORMATION
  Report Type: Report from Study
  Country: CA (occurrence: CA)
  Receive Date: 20220920
  Receipt Date: 20220920
  Transmission Date: 20221026
  Serious: Yes (Other)
  Sender: FDA-Public Use
  Company Number: CA-BRISTOL-MYERS SQUIBB COMPANY-2022-107217

PATIENT
  Age: 62 Year
  Sex: Female

DRUGS (3)
  1. LENALIDOMIDE [Suspect]
     Active Substance: LENALIDOMIDE
     Indication: Plasma cell myeloma
     Route: 048
  2. LENALIDOMIDE [Suspect]
     Active Substance: LENALIDOMIDE
     Route: 065
  3. SEMAGLUTIDE [Concomitant]
     Active Substance: SEMAGLUTIDE
     Indication: Product used for unknown indication
     Route: 065

REACTIONS (8)
  - Asthenia [Unknown]
  - COVID-19 [Unknown]
  - Clostridium difficile colitis [Unknown]
  - Dyspnoea [Unknown]
  - Malaise [Unknown]
  - Pruritus [Unknown]
  - Tachycardia [Unknown]
  - Product dose omission issue [Unknown]
